FAERS Safety Report 6257768-1 (Version None)
Quarter: 2009Q3

REPORT INFORMATION
  Report Type: 
  Country: None (occurrence: None)
  Receive Date: 20090706
  Receipt Date: 20090628
  Transmission Date: 20100115
  Serious: Yes (Hospitalization)
  Sender: FDA-Public Use
  Company Number: US-GENENTECH-285837

PATIENT
  Sex: Female

DRUGS (27)
  1. BLINDED ANTI-CD40 [Suspect]
     Indication: DIFFUSE LARGE B-CELL LYMPHOMA
     Dosage: 2 MG/KG, SINGLE
     Route: 042
     Dates: start: 20080812, end: 20080812
  2. BLINDED PLACEBO [Suspect]
     Indication: DIFFUSE LARGE B-CELL LYMPHOMA
     Dosage: 2 MG/KG, SINGLE
     Route: 042
     Dates: start: 20080812, end: 20080812
  3. BLINDED ANTI-CD40 [Suspect]
     Dosage: 4 MG/KG, SINGLE
     Route: 042
     Dates: start: 20080815, end: 20080815
  4. BLINDED PLACEBO [Suspect]
     Dosage: 4 MG/KG, SINGLE
     Route: 042
     Dates: start: 20080815, end: 20080815
  5. BLINDED ANTI-CD40 [Suspect]
     Dosage: 8 MG/L, Q3W
     Route: 042
     Dates: start: 20080820, end: 20081015
  6. BLINDED PLACEBO [Suspect]
     Dosage: 8 MG/L, Q3W
     Route: 042
     Dates: start: 20080820, end: 20081015
  7. RITUXAN [Suspect]
     Indication: DIFFUSE LARGE B-CELL LYMPHOMA
     Dosage: 375 MG/M2, Q3W
     Route: 042
     Dates: start: 20080811, end: 20081001
  8. ETOPOSIDE [Suspect]
     Indication: DIFFUSE LARGE B-CELL LYMPHOMA
     Dosage: 100 MG/M2, Q3W
     Route: 042
     Dates: start: 20080813, end: 20081003
  9. CARBOPLATIN [Suspect]
     Indication: DIFFUSE LARGE B-CELL LYMPHOMA
     Dosage: 5 MG/ML/MIN, Q3W
     Route: 042
     Dates: start: 20080814, end: 20081002
  10. IFOSFAMIDE [Suspect]
     Indication: DIFFUSE LARGE B-CELL LYMPHOMA
     Dosage: 5 G/M2, Q3W
     Route: 042
     Dates: start: 20080814, end: 20081002
  11. ALPRAZOLAM [Concomitant]
     Indication: DRUG USE FOR UNKNOWN INDICATION
  12. AMITRIPTYLINE [Concomitant]
     Indication: DRUG USE FOR UNKNOWN INDICATION
  13. ASPIRIN [Concomitant]
     Indication: DRUG USE FOR UNKNOWN INDICATION
  14. DOCUSATE SODIUM [Concomitant]
     Indication: DRUG USE FOR UNKNOWN INDICATION
  15. MULTI-VITAMINS [Concomitant]
     Indication: DRUG USE FOR UNKNOWN INDICATION
  16. FLUOXETINE HCL [Concomitant]
     Indication: DRUG USE FOR UNKNOWN INDICATION
  17. GABAPENTIN [Concomitant]
     Indication: DRUG USE FOR UNKNOWN INDICATION
  18. HEPARIN SODIUM [Concomitant]
     Indication: DRUG USE FOR UNKNOWN INDICATION
  19. HYDRALAZINE HCL [Concomitant]
     Indication: DRUG USE FOR UNKNOWN INDICATION
  20. HYDROMORPHONE [Concomitant]
     Indication: DRUG USE FOR UNKNOWN INDICATION
  21. ISOSORBIDE MONONITRATE [Concomitant]
     Indication: DRUG USE FOR UNKNOWN INDICATION
  22. LISINOPRIL [Concomitant]
     Indication: DRUG USE FOR UNKNOWN INDICATION
  23. LUNESTA [Concomitant]
     Indication: DRUG USE FOR UNKNOWN INDICATION
  24. MORPHINE [Concomitant]
     Indication: DRUG USE FOR UNKNOWN INDICATION
  25. ESOMEPRAZOLE MAGNESIUM [Concomitant]
     Indication: DRUG USE FOR UNKNOWN INDICATION
  26. CLOPIDOGREL BISULFATE [Concomitant]
     Indication: DRUG USE FOR UNKNOWN INDICATION
  27. VERAPAMIL [Concomitant]
     Indication: DRUG USE FOR UNKNOWN INDICATION

REACTIONS (1)
  - FEBRILE NEUTROPENIA [None]
